FAERS Safety Report 5356817-2 (Version None)
Quarter: 2007Q2

REPORT INFORMATION
  Report Type: 
  Country: None (occurrence: None)
  Receive Date: 20070530
  Receipt Date: 20070123
  Transmission Date: 20071010
  Serious: Yes (Hospitalization)
  Sender: FDA-Public Use
  Company Number: US200701005341

PATIENT
  Age: 53 Year
  Sex: Female

DRUGS (2)
  1. ZYPREXA [Suspect]
  2. LITHIUM CARBONATE [Concomitant]

REACTIONS (3)
  - DIABETES MELLITUS [None]
  - HYPERGLYCAEMIA [None]
  - POLYDIPSIA [None]
